FAERS Safety Report 10358570 (Version 1)
Quarter: 2014Q3

REPORT INFORMATION
  Report Type: Spontaneous
  Country: JP (occurrence: JP)
  Receive Date: 20140803
  Receipt Date: 20140803
  Transmission Date: 20150326
  Serious: Yes (Other)
  Sender: FDA-Public Use
  Company Number: PHHY2014JP093357

PATIENT
  Age: 11 Year
  Sex: Male

DRUGS (11)
  1. CISPLATIN. [Suspect]
     Active Substance: CISPLATIN
     Indication: MEDULLOBLASTOMA
     Dosage: 500 MG/M2, TOTAL
  2. DOXORUBICIN [Suspect]
     Active Substance: DOXORUBICIN
     Indication: OSTEOSARCOMA
     Dosage: 180 MG/M2, TOTAL
  3. IFOSFAMIDE. [Suspect]
     Active Substance: IFOSFAMIDE
     Indication: OSTEOSARCOMA
     Dosage: 36 G/M2, TOTAL
  4. ETOPOSIDE. [Suspect]
     Active Substance: ETOPOSIDE
     Indication: MEDULLOBLASTOMA
     Dosage: 2 G/M2, TOTAL
  5. PIRARUBICIN [Suspect]
     Active Substance: PIRARUBICIN
     Indication: OSTEOSARCOMA
     Dosage: 585 MG/M2, TOTAL
  6. CYCLOPHOSPHAMIDE. [Suspect]
     Active Substance: CYCLOPHOSPHAMIDE
     Indication: MEDULLOBLASTOMA
     Dosage: 12 G/M2; TOTAL
  7. THIOTEPA. [Suspect]
     Active Substance: THIOTEPA
     Indication: MEDULLOBLASTOMA
     Dosage: 26 MG/KG, TOTAL
  8. MELPHALAN [Suspect]
     Active Substance: MELPHALAN
     Indication: MEDULLOBLASTOMA
     Dosage: 6 MG/KG, TOTAL
  9. CISPLATIN. [Suspect]
     Active Substance: CISPLATIN
     Indication: OSTEOSARCOMA
     Dosage: 360 MG/M2, TOTAL
  10. VINCRISTINE [Suspect]
     Active Substance: VINCRISTINE
     Indication: MEDULLOBLASTOMA
     Dosage: 15 MG/M2, TOTAL
  11. METHOTREXATE [Suspect]
     Active Substance: METHOTREXATE
     Indication: OSTEOSARCOMA
     Dosage: 216 G/M2, TOTAL

REACTIONS (4)
  - Myelodysplastic syndrome [Recovered/Resolved]
  - Haemorrhagic diathesis [Recovered/Resolved]
  - Pancytopenia [Recovered/Resolved]
  - Bone marrow failure [Recovered/Resolved]
